FAERS Safety Report 5115347-3 (Version None)
Quarter: 2006Q3

REPORT INFORMATION
  Report Type: 
  Country: None (occurrence: None)
  Receive Date: 20060922
  Receipt Date: 20060913
  Transmission Date: 20061208
  Serious: Yes (Other)
  Sender: FDA-Public Use
  Company Number: 2006BH013395

PATIENT
  Age: 67 Year
  Sex: Female

DRUGS (2)
  1. VANCOMYCIN [Suspect]
     Indication: PNEUMONIA
  2. PREDNISOLONE [Concomitant]

REACTIONS (2)
  - ANAEMIA [None]
  - LINEAR IGA DISEASE [None]
